FAERS Safety Report 7494374-5 (Version None)
Quarter: 2011Q2

REPORT INFORMATION
  Report Type: 
  Country: None (occurrence: None)
  Receive Date: 20110520
  Receipt Date: 20110516
  Transmission Date: 20111010
  Serious: Yes (Hospitalization)
  Sender: FDA-Public Use
  Company Number: US-MERCK-1104USA02244

PATIENT
  Sex: Male

DRUGS (1)
  1. INVANZ [Suspect]
     Route: 042
     Dates: start: 20110301

REACTIONS (5)
  - DISORIENTATION [None]
  - CONFUSIONAL STATE [None]
  - FALL [None]
  - PERSONALITY CHANGE [None]
  - CARDIAC DISORDER [None]
